FAERS Safety Report 7974113-1 (Version None)
Quarter: 2011Q4

REPORT INFORMATION
  Report Type: 
  Country: None (occurrence: None)
  Receive Date: 20111213
  Receipt Date: 20111207
  Transmission Date: 20120403
  Serious: Yes (Other)
  Sender: FDA-Public Use
  Company Number: PHHY2011US106959

PATIENT
  Age: 50 Year
  Sex: Female

DRUGS (2)
  1. HYDROXYCHLOROQUINE SULFATE [Suspect]
     Dosage: 200 MG, BID
  2. CORTICOSTEROIDS [Concomitant]

REACTIONS (10)
  - VENOUS PRESSURE JUGULAR DECREASED [None]
  - BREATH SOUNDS ABNORMAL [None]
  - RESTRICTIVE CARDIOMYOPATHY [None]
  - TACHYCARDIA [None]
  - ABDOMINAL DISTENSION [None]
  - BLOOD PRESSURE DECREASED [None]
  - OEDEMA [None]
  - OEDEMA PERIPHERAL [None]
  - CARDIAC FAILURE [None]
  - DYSPNOEA EXERTIONAL [None]
